FAERS Safety Report 8024657-1 (Version None)
Quarter: 2011Q4

REPORT INFORMATION
  Report Type: 
  Country: None (occurrence: None)
  Receive Date: 20111130
  Receipt Date: 20110408
  Transmission Date: 20120403
  Serious: Yes (Other)
  Sender: FDA-Public Use
  Company Number: PHHY2011US30513

PATIENT
  Age: 75 Year
  Sex: Female

DRUGS (1)
  1. TEKTURNA [Suspect]
     Dosage: 150 MG
     Dates: start: 20110406, end: 20110408

REACTIONS (3)
  - ARTHRALGIA [None]
  - OEDEMA MOUTH [None]
  - LOCAL SWELLING [None]
